FAERS Safety Report 21300866 (Version 2)
Quarter: 2022Q3

REPORT INFORMATION
  Report Type: Spontaneous
  Country: FR (occurrence: FR)
  Receive Date: 20220907
  Receipt Date: 20220930
  Transmission Date: 20221027
  Serious: Yes (Hospitalization)
  Sender: FDA-Public Use
  Company Number: None

PATIENT
  Age: 4 Day
  Sex: Male
  Weight: 2.92 kg

DRUGS (2)
  1. RITUXIMAB [Suspect]
     Active Substance: RITUXIMAB
     Indication: Haemolytic anaemia
     Route: 065
     Dates: start: 20220104, end: 20220104
  2. SOLIRIS [Suspect]
     Active Substance: ECULIZUMAB
     Indication: Haemolytic anaemia
     Route: 065
     Dates: start: 20220103, end: 20220103

REACTIONS (4)
  - Skin mass [Recovered/Resolved]
  - B-lymphocyte abnormalities [Recovering/Resolving]
  - Cephalhaematoma [Recovered/Resolved]
  - Total complement activity decreased [Recovering/Resolving]

NARRATIVE: CASE EVENT DATE: 20220112
